FAERS Safety Report 13862544 (Version 1)
Quarter: 2017Q3

REPORT INFORMATION
  Report Type: Spontaneous
  Country: US (occurrence: US)
  Receive Date: 20170814
  Receipt Date: 20170814
  Transmission Date: 20171127
  Serious: No
  Sender: FDA-Public Use
  Company Number: US-AMGEN-USASP2017118665

PATIENT
  Age: 35 Year
  Sex: Female

DRUGS (2)
  1. PROAIR HFA [Concomitant]
     Active Substance: ALBUTEROL SULFATE
  2. ENBREL [Suspect]
     Active Substance: ETANERCEPT
     Indication: ANKYLOSING SPONDYLITIS
     Dosage: 50 MG, QWK
     Route: 065

REACTIONS (4)
  - Arthralgia [Unknown]
  - Grip strength decreased [Unknown]
  - Musculoskeletal stiffness [Unknown]
  - Pain in extremity [Unknown]

NARRATIVE: CASE EVENT DATE: 201707
